FAERS Safety Report 10194942 (Version 4)
Quarter: 2014Q2

REPORT INFORMATION
  Report Type: Spontaneous
  Country: UA (occurrence: UA)
  Receive Date: 20140526
  Receipt Date: 20140620
  Transmission Date: 20141212
  Serious: Yes (Death, Other)
  Sender: FDA-Public Use
  Company Number: UA-ASTRAZENECA-2014SE35911

PATIENT
  Age: 20802 Day
  Sex: Male
  Weight: 80 kg

DRUGS (4)
  1. BRILINTA [Suspect]
     Indication: ACUTE CORONARY SYNDROME
     Route: 048
     Dates: start: 20140516, end: 20140520
  2. ASPIRIN [Suspect]
     Route: 065
  3. FLENOX (ENOXAPARIN SODIUM) [Suspect]
     Route: 065
  4. ALLOXIMUM [Suspect]
     Route: 065

REACTIONS (4)
  - Blood pressure increased [Unknown]
  - Haemorrhagic stroke [Fatal]
  - Craniocerebral injury [Unknown]
  - Reactive psychosis [Unknown]
